FAERS Safety Report 16896412 (Version 2)
Quarter: 2022Q1

REPORT INFORMATION
  Report Type: Spontaneous
  Country: GB (occurrence: GB)
  Receive Date: 20191008
  Receipt Date: 20220315
  Transmission Date: 20220423
  Serious: Yes (Other)
  Sender: FDA-Public Use
  Company Number: None

PATIENT
  Sex: Male

DRUGS (8)
  1. OLANZAPINE [Suspect]
     Active Substance: OLANZAPINE
     Indication: Product used for unknown indication
     Dosage: 10 MG, DAILY
     Route: 065
  2. PROMETHAZINE HYDROCHLORIDE [Suspect]
     Active Substance: PROMETHAZINE HYDROCHLORIDE
     Indication: Product used for unknown indication
     Dosage: 25 MG, EACH EVENING
     Route: 065
  3. FERROUS FUMARATE [Suspect]
     Active Substance: FERROUS FUMARATE
     Indication: Anaemia
     Dosage: 420 MG, DAILY
     Route: 065
  4. FOLIC ACID [Suspect]
     Active Substance: FOLIC ACID
     Indication: Folate deficiency
     Dosage: 5 MG, DAILY
     Route: 065
  5. AZATHIOPRINE [Suspect]
     Active Substance: AZATHIOPRINE
     Indication: Colitis
     Dosage: 75 MG, DAILY
     Route: 065
  6. ESCITALOPRAM [Suspect]
     Active Substance: ESCITALOPRAM OXALATE
     Indication: Product used for unknown indication
     Dosage: 10 MG, EACH MORNING
     Route: 065
  7. DIHYDROCODEINE [Suspect]
     Active Substance: DIHYDROCODEINE
     Indication: Pain
     Dosage: 60 MG, PRN (FOUR TIMES A DAY. TAKE WITH OR JUST AFTER FOOD)
     Route: 065
  8. MIRTAZAPINE [Suspect]
     Active Substance: MIRTAZAPINE
     Indication: Product used for unknown indication
     Dosage: 30 MG, DAILY
     Route: 048

REACTIONS (2)
  - Autoscopy [Unknown]
  - Seizure [Unknown]
